FAERS Safety Report 7958468-X (Version None)
Quarter: 2011Q4

REPORT INFORMATION
  Report Type: 
  Country: None (occurrence: None)
  Receive Date: 20111205
  Receipt Date: 20111123
  Transmission Date: 20120403
  Serious: Yes (Other)
  Sender: FDA-Public Use
  Company Number: JP-ELI_LILLY_AND_COMPANY-JP201111007947

PATIENT
  Age: 81 Year
  Sex: Female

DRUGS (11)
  1. FORTEO [Suspect]
     Indication: OSTEOPOROSIS
     Dosage: 20 UG, QD
     Route: 058
     Dates: start: 20110421
  2. ASPARA-CA [Concomitant]
     Indication: OSTEOPOROSIS
     Dosage: UNK MG, UNK
     Route: 048
     Dates: start: 20110421
  3. MUCODYNE [Concomitant]
     Indication: DIFFUSE PANBRONCHIOLITIS
     Dosage: UNK MG, UNK
     Route: 048
  4. METHOTREXATE [Concomitant]
  5. RIMATIL [Concomitant]
     Indication: RHEUMATOID ARTHRITIS
     Dosage: UNK MG, UNK
     Route: 048
  6. PAXIL [Concomitant]
     Indication: DEPRESSION
     Dosage: UNK MG, UNK
     Route: 048
  7. MINOCYCLINE HCL [Concomitant]
     Indication: RHEUMATOID ARTHRITIS
     Dosage: UNK MG, UNK
     Route: 048
  8. CLEANAL [Concomitant]
     Indication: DIFFUSE PANBRONCHIOLITIS
     Dosage: UNK MG, UNK
     Route: 048
  9. DEPAS [Concomitant]
     Indication: SLEEP DISORDER
     Dosage: UNK MG, UNK
     Route: 048
  10. PREDNISOLONE [Concomitant]
     Indication: RHEUMATOID ARTHRITIS
     Dosage: UNK MG, UNK
     Route: 048
  11. LANSOPRAZOLE [Concomitant]
     Indication: GASTROOESOPHAGEAL REFLUX DISEASE
     Dosage: UNK MG, UNK
     Route: 048

REACTIONS (2)
  - GENERAL PHYSICAL HEALTH DETERIORATION [None]
  - PSOAS ABSCESS [None]
